FAERS Safety Report 10183708 (Version 1)
Quarter: 2014Q2

REPORT INFORMATION
  Report Type: Spontaneous
  Country: US (occurrence: US)
  Receive Date: 20140520
  Receipt Date: 20140520
  Transmission Date: 20141212
  Serious: No
  Sender: FDA-Public Use
  Company Number: US-ENDO PHARMACEUTICALS INC.-GILD20130026

PATIENT
  Age: 19 Year
  Sex: Female

DRUGS (3)
  1. GILDESS FE TABLETS [Suspect]
     Indication: CONTRACEPTION
     Dosage: UNK
     Route: 048
     Dates: start: 201307
  2. SYNTHROID [Suspect]
     Indication: HYPOTHYROIDISM
     Route: 048
  3. JUNEL FE [Concomitant]
     Indication: CONTRACEPTION
     Dosage: UNK
     Route: 048
     Dates: end: 201307

REACTIONS (2)
  - Diarrhoea [Unknown]
  - Abdominal pain [Unknown]
